FAERS Safety Report 4526243-4 (Version None)
Quarter: 2004Q4

REPORT INFORMATION
  Report Type: 
  Country: None (occurrence: None)
  Receive Date: 20041214
  Receipt Date: 20041206
  Transmission Date: 20050328
  Serious: Yes (Hospitalization)
  Sender: FDA-Public Use
  Company Number: FR-BRISTOL-MYERS SQUIBB COMPANY-12784914

PATIENT
  Age: 38 Year
  Sex: Male

DRUGS (5)
  1. STAVUDINE [Suspect]
     Dosage: INTERRUPTED PREVIOUSLY FOR 2 MONTHS DUE TO PANCREATITIS, RESUMED
     Dates: end: 19981101
  2. EFAVIRENZ [Suspect]
  3. RITONAVIR [Suspect]
  4. ABACAVIR [Suspect]
  5. SAQUINAVIR [Suspect]

REACTIONS (7)
  - CONFUSIONAL STATE [None]
  - CONVULSION [None]
  - PANCREATITIS [None]
  - PYREXIA [None]
  - RENAL FAILURE ACUTE [None]
  - RENAL NECROSIS [None]
  - THROMBOTIC MICROANGIOPATHY [None]
